FAERS Safety Report 14926910 (Version 1)
Quarter: 2018Q2

REPORT INFORMATION
  Report Type: Spontaneous
  Country: FR (occurrence: FR)
  Receive Date: 20180523
  Receipt Date: 20180523
  Transmission Date: 20180711
  Serious: Yes (Other)
  Sender: FDA-Public Use
  Company Number: FR-MERCK KGAA-2048285

PATIENT
  Age: 36 Year
  Sex: Female

DRUGS (1)
  1. NOVOTHYROX [Suspect]
     Active Substance: LEVOTHYROXINE SODIUM
     Indication: PRODUCT USED FOR UNKNOWN INDICATION

REACTIONS (7)
  - Migraine [None]
  - Loss of personal independence in daily activities [None]
  - Blood triglycerides increased [None]
  - Epstein-Barr virus infection [None]
  - Staphylococcal infection [None]
  - Thyroid disorder [None]
  - Lichen planus [None]

NARRATIVE: CASE EVENT DATE: 201704
